FAERS Safety Report 5266525-4 (Version None)
Quarter: 2007Q1

REPORT INFORMATION
  Report Type: 
  Country: None (occurrence: None)
  Receive Date: 20070315
  Receipt Date: 20070313
  Transmission Date: 20070707
  Serious: Yes (Other)
  Sender: FDA-Public Use
  Company Number: US-ROXANE LABORATORIES, INC-2007-DE-01518GD

PATIENT
  Age: 53 Year
  Sex: Female

DRUGS (2)
  1. MORPHINE [Suspect]
     Indication: PAIN
     Dosage: ESCALATING DOSES TO A MAXIMUM DOSE OF 9.0 MG, THEN DECREASED BY 25 % PER WEEK FOR WEANING, LASTING 4
     Route: 037
  2. BUPIVACAINE [Suspect]
     Indication: PAIN
     Dosage: ESCALATING DOSES TO A MAXIMUM DOSE OF 6.0 MG VIA IMPLANTED INFUSION PUMP
     Route: 037

REACTIONS (2)
  - DRUG INEFFECTIVE [None]
  - DRUG WITHDRAWAL SYNDROME [None]
